FAERS Safety Report 9063750 (Version 1)
Quarter: 2013Q1

REPORT INFORMATION
  Report Type: Spontaneous
  Country: JP (occurrence: JP)
  Receive Date: 20130213
  Receipt Date: 20130213
  Transmission Date: 20140127
  Serious: Yes (Other)
  Sender: FDA-Public Use
  Company Number: JP-ASTELLAS-2013JP001399

PATIENT
  Age: 54 Year
  Sex: Male

DRUGS (4)
  1. FUNGUARD [Suspect]
     Indication: FUNGAL INFECTION
     Dosage: 300 MG, UNKNOWN/D
     Route: 041
  2. ITRACONAZOLE [Concomitant]
     Indication: FUNGAL INFECTION
     Route: 065
  3. MEROPENEM [Concomitant]
     Indication: FUNGAL INFECTION
     Route: 065
  4. VORICONAZOLE [Concomitant]
     Indication: FUNGAL INFECTION
     Route: 065

REACTIONS (2)
  - Drug ineffective [Unknown]
  - Fungal infection [Unknown]
